FAERS Safety Report 18684370 (Version 1)
Quarter: 2020Q4

REPORT INFORMATION
  Report Type: Spontaneous
  Country: GB (occurrence: GB)
  Receive Date: 20201230
  Receipt Date: 20201230
  Transmission Date: 20210114
  Serious: Yes (Other)
  Sender: FDA-Public Use
  Company Number: GB-ASTRAZENECA-2020SF71948

PATIENT
  Age: 65 Year
  Sex: Female
  Weight: 70 kg

DRUGS (9)
  1. RANITIDINE. [Concomitant]
     Active Substance: RANITIDINE
     Dates: start: 20190723
  2. OMEPRAZOLE. [Suspect]
     Active Substance: OMEPRAZOLE
     Indication: GASTRITIS
     Route: 048
     Dates: start: 20201130
  3. CLENIL MODULITE [Concomitant]
     Active Substance: BECLOMETHASONE DIPROPIONATE
     Dosage: 2, DAILY, 1 -2 PUFFS
     Route: 055
     Dates: start: 20190723
  4. COCODAMOL [Concomitant]
     Active Substance: ACETAMINOPHEN\CODEINE PHOSPHATE
     Dosage: 4 DAILY, TAKE 1 OR 2
     Dates: start: 20201127
  5. SALBUTAMOL [Concomitant]
     Active Substance: ALBUTEROL
     Dosage: INTERMITTENT
     Dates: start: 20190723
  6. CETRABEN EMOLLIENT CREAM [Concomitant]
     Dates: start: 20201027
  7. VOLTAROL [Concomitant]
     Active Substance: DICLOFENAC SODIUM
     Dates: start: 20201127
  8. PANTOPRAZOLE [Concomitant]
     Active Substance: PANTOPRAZOLE
     Indication: ABDOMINAL DISTENSION
     Dosage: 1-2 PER DAY FOR ACID SYMPTOMS/BLOATING
     Dates: start: 20201209
  9. MOMETASONE [Concomitant]
     Active Substance: MOMETASONE
     Dosage: APPLY TWICE DAILY FOR TWO WEEKS, THEN ONCE DAIL...
     Dates: start: 20201027, end: 20201124

REACTIONS (4)
  - Drug hypersensitivity [Unknown]
  - Ear pain [Recovered/Resolved]
  - Oral pruritus [Recovered/Resolved]
  - Tongue pruritus [Unknown]

NARRATIVE: CASE EVENT DATE: 20201209
